FAERS Safety Report 6878521-1 (Version None)
Quarter: 2010Q3

REPORT INFORMATION
  Report Type: 
  Country: None (occurrence: None)
  Receive Date: 20100728
  Receipt Date: 20100721
  Transmission Date: 20110219
  Serious: Yes (Hospitalization)
  Sender: FDA-Public Use
  Company Number: JP-SANOFI-AVENTIS-200910571JP

PATIENT
  Age: 43 Year
  Sex: Female
  Weight: 51.8 kg

DRUGS (5)
  1. LANTUS [Suspect]
     Indication: TYPE 1 DIABETES MELLITUS
     Dosage: DOSE AS USED: 12 UNITS  DOSE:15 UNIT(S)
     Route: 058
  2. LANTUS [Suspect]
     Dosage: DOSE AS USED: 12 UNITS  DOSE:13 UNIT(S)
     Route: 058
  3. SOLOSTAR [Suspect]
  4. INSULIN ASPART [Concomitant]
     Indication: TYPE 1 DIABETES MELLITUS
     Dosage: 5 TO 15 UNITS BEFORE MEALS
     Route: 058
  5. INSULIN ASPART [Concomitant]
     Dosage: 4 TO 8 UNITS BEFORE MEALS
     Route: 058

REACTIONS (4)
  - AMNESIA [None]
  - COMA [None]
  - GLYCOSYLATED HAEMOGLOBIN INCREASED [None]
  - HYPOGLYCAEMIC ENCEPHALOPATHY [None]
